FAERS Safety Report 16941653 (Version 1)
Quarter: 2019Q4

REPORT INFORMATION
  Report Type: Report from Study
  Country: BR (occurrence: BR)
  Receive Date: 20191021
  Receipt Date: 20191021
  Transmission Date: 20200122
  Serious: Yes (Other)
  Sender: FDA-Public Use
  Company Number: NVSC2019BR010819

PATIENT
  Sex: Male

DRUGS (2)
  1. VOTRIENT [Suspect]
     Active Substance: PAZOPANIB HYDROCHLORIDE
     Indication: PRODUCT USED FOR UNKNOWN INDICATION
     Dosage: 2 DF (400 MG), QD
     Route: 065
     Dates: start: 20190811
  2. MAREVAN [Concomitant]
     Active Substance: WARFARIN SODIUM
     Indication: COAGULOPATHY
     Dosage: 5 MG
     Route: 065

REACTIONS (8)
  - Thrombosis [Unknown]
  - Appetite disorder [Unknown]
  - Weight increased [Unknown]
  - Metastases to liver [Unknown]
  - Vascular neoplasm [Unknown]
  - Renal neoplasm [Unknown]
  - Blood potassium increased [Unknown]
  - Alopecia [Recovered/Resolved]
